FAERS Safety Report 7702319-5 (Version None)
Quarter: 2011Q3

REPORT INFORMATION
  Report Type: 
  Country: None (occurrence: None)
  Receive Date: 20110822
  Receipt Date: 20110810
  Transmission Date: 20111222
  Serious: Yes (Hospitalization, Other)
  Sender: FDA-Public Use
  Company Number: PHHY2011BR72633

PATIENT
  Sex: Female

DRUGS (4)
  1. AMIODARONE HYDROCHLORIDE [Suspect]
     Dosage: UNK UKN, UNK
  2. LOSARTAN POTASSIUM [Suspect]
     Dosage: UNK UKN, UNK
  3. COUMADIN [Suspect]
     Dosage: UNK UKN, UNK
  4. EXELON [Suspect]
     Dosage: 4.6 MG, UNK
     Route: 062

REACTIONS (6)
  - SEPSIS [None]
  - TREMOR [None]
  - VOMITING [None]
  - ATRIAL FIBRILLATION [None]
  - CEREBROVASCULAR ACCIDENT [None]
  - DIARRHOEA [None]
